FAERS Safety Report 4786571-4 (Version None)
Quarter: 2005Q3

REPORT INFORMATION
  Report Type: 
  Country: None (occurrence: None)
  Receive Date: 20050927
  Receipt Date: 20050607
  Transmission Date: 20060218
  Serious: No
  Sender: FDA-Public Use
  Company Number: USA050699927

PATIENT
  Age: 10 Year
  Sex: Male
  Weight: 41 kg

DRUGS (1)
  1. STRATTERA [Suspect]
     Indication: ANXIETY
     Dosage: 60 MG DAY
     Dates: start: 20030101

REACTIONS (3)
  - ANGER [None]
  - ARTHRALGIA [None]
  - PRESCRIBED OVERDOSE [None]
